FAERS Safety Report 4434851-4 (Version None)
Quarter: 2004Q3

REPORT INFORMATION
  Report Type: 
  Country: None (occurrence: None)
  Receive Date: 20040726
  Receipt Date: 20040311
  Transmission Date: 20050211
  Serious: No
  Sender: FDA-Public Use
  Company Number: USA040259968

PATIENT
  Age: 79 Year
  Sex: Female
  Weight: 84 kg

DRUGS (9)
  1. FORTEO [Suspect]
     Indication: OSTEOPOROSIS
     Dosage: 20 UG/ 1 DAY
     Dates: start: 20040117
  2. CALCIUM [Concomitant]
  3. VITAMIN D [Concomitant]
  4. OSCAL (CALCIUM CARBONATE) [Concomitant]
  5. LIPITOR [Concomitant]
  6. PREVACID [Concomitant]
  7. SYNTHROID [Concomitant]
  8. PENTA-TRIAMTERENE HCTZ [Concomitant]
  9. ASPIRIN [Concomitant]

REACTIONS (3)
  - CHOKING [None]
  - HYPERMETROPIA [None]
  - NASOPHARYNGITIS [None]
